FAERS Safety Report 10613029 (Version 1)
Quarter: 2014Q4

REPORT INFORMATION
  Report Type: Report from Study
  Country: BR (occurrence: BR)
  Receive Date: 20141127
  Receipt Date: 20141127
  Transmission Date: 20150529
  Serious: Yes (Death, Hospitalization, Other)
  Sender: FDA-Public Use
  Company Number: PHHY2014BR155497

PATIENT
  Age: 75 Year
  Sex: Female
  Weight: 90 kg

DRUGS (3)
  1. ACLASTA [Suspect]
     Active Substance: ZOLEDRONIC ACID
     Indication: OSTEOPOROSIS
     Dosage: UNK
     Route: 042
     Dates: start: 2014
  2. APRESOLINE HYDROCHLORIDE [Concomitant]
     Active Substance: HYDRALAZINE HYDROCHLORIDE
     Indication: HYPERTENSION
     Dosage: 3 DF, QD
     Route: 065
     Dates: start: 2000
  3. METHYLDOPA. [Concomitant]
     Active Substance: METHYLDOPA
     Indication: HYPERTENSION
     Dosage: 3 DF, QD
     Route: 065
     Dates: start: 2000

REACTIONS (6)
  - Cardiac arrest [Fatal]
  - Venous occlusion [Not Recovered/Not Resolved]
  - Malaise [Not Recovered/Not Resolved]
  - Fatigue [Not Recovered/Not Resolved]
  - Infarction [Not Recovered/Not Resolved]
  - Chest pain [Not Recovered/Not Resolved]

NARRATIVE: CASE EVENT DATE: 20141002
